FAERS Safety Report 7552347-8 (Version None)
Quarter: 2011Q2

REPORT INFORMATION
  Report Type: 
  Country: None (occurrence: None)
  Receive Date: 20110616
  Receipt Date: 20060630
  Transmission Date: 20111010
  Serious: Yes (Disabling)
  Sender: FDA-Public Use
  Company Number: PHFR2006GB01635

PATIENT
  Sex: Male

DRUGS (8)
  1. RAMIPRIL [Concomitant]
     Dosage: 1.25 MG
     Route: 048
  2. CLOZAPINE [Suspect]
     Indication: SCHIZOPHRENIA
     Dosage: 500 MG
     Route: 048
     Dates: start: 20050728, end: 20060526
  3. ZOPICLONE [Concomitant]
     Indication: INSOMNIA
     Dosage: 7.5 MG
     Route: 048
     Dates: start: 20050722
  4. ATORVASTATIN [Concomitant]
     Indication: HYPERCHOLESTEROLAEMIA
     Dosage: 20 MG
     Route: 048
     Dates: start: 20060330
  5. ASPIRIN [Concomitant]
     Indication: ISCHAEMIC LIMB PAIN
     Dosage: 75 MG
     Route: 048
     Dates: start: 20060330
  6. OMEPRAZOLE [Concomitant]
     Indication: GASTROOESOPHAGEAL REFLUX DISEASE
     Dates: start: 20050721
  7. OXYCODONE HCL EXTENDED-RELEASE [Concomitant]
     Indication: ISCHAEMIC LIMB PAIN
     Dosage: 30 MG
     Route: 048
     Dates: start: 20060421
  8. ATENOLOL [Concomitant]
     Indication: PERIPHERAL VASCULAR DISORDER
     Dosage: 50 MG
     Route: 048
     Dates: start: 20060412

REACTIONS (12)
  - PERIPHERAL ISCHAEMIA [None]
  - CARDIOVASCULAR DISORDER [None]
  - PERIPHERAL ARTERIAL OCCLUSIVE DISEASE [None]
  - SOMNOLENCE [None]
  - SKIN DISCOLOURATION [None]
  - PULSE PRESSURE DECREASED [None]
  - SENSORY DISTURBANCE [None]
  - PLATELET COUNT INCREASED [None]
  - ULTRASOUND DOPPLER ABNORMAL [None]
  - GANGRENE [None]
  - BLOOD FIBRINOGEN INCREASED [None]
  - BLOOD GLUCOSE INCREASED [None]
